FAERS Safety Report 16532165 (Version 1)
Quarter: 2019Q3

REPORT INFORMATION
  Report Type: Spontaneous
  Country: SE (occurrence: SE)
  Receive Date: 20190704
  Receipt Date: 20190704
  Transmission Date: 20191004
  Serious: Yes (Hospitalization)
  Sender: FDA-Public Use
  Company Number: SE-PFIZER INC-2019277248

PATIENT
  Age: 32 Year
  Sex: Female

DRUGS (5)
  1. ATARAX [Suspect]
     Active Substance: HYDROXYZINE HYDROCHLORIDE
     Dosage: UNK
     Dates: start: 20190307, end: 20190307
  2. SERTRALINE HCL [Suspect]
     Active Substance: SERTRALINE HYDROCHLORIDE
     Dosage: UNK
     Dates: start: 20190307, end: 20190307
  3. ZOPICLONE [Suspect]
     Active Substance: ZOPICLONE
     Dosage: UNK
  4. LERGIGAN [PROMETHAZINE HYDROCHLORIDE] [Suspect]
     Active Substance: PROMETHAZINE HYDROCHLORIDE
     Dosage: UNK
     Route: 048
     Dates: start: 20190307, end: 20190307
  5. OXASCAND [Suspect]
     Active Substance: OXAZEPAM
     Dosage: UNK
     Dates: start: 20190307, end: 20190307

REACTIONS (5)
  - Depressed level of consciousness [Unknown]
  - Gastrointestinal sounds abnormal [Unknown]
  - Intentional overdose [Unknown]
  - Intentional self-injury [Unknown]
  - Hypothermia [Unknown]

NARRATIVE: CASE EVENT DATE: 20190307
